FAERS Safety Report 14233520 (Version 2)
Quarter: 2018Q1

REPORT INFORMATION
  Report Type: Spontaneous
  Country: JP (occurrence: JP)
  Receive Date: 20171128
  Receipt Date: 20180116
  Transmission Date: 20180508
  Serious: No
  Sender: FDA-Public Use
  Company Number: JP-ALLERGAN-1765970US

PATIENT
  Sex: Female

DRUGS (1)
  1. ASENAPINE MALEATE - BP [Suspect]
     Active Substance: ASENAPINE MALEATE
     Indication: PRODUCT USED FOR UNKNOWN INDICATION
     Dosage: UNK
     Route: 060
     Dates: start: 201710

REACTIONS (4)
  - Ageusia [Unknown]
  - Tongue disorder [Unknown]
  - Glossodynia [Unknown]
  - Swollen tongue [Unknown]

NARRATIVE: CASE EVENT DATE: 201710
